FAERS Safety Report 8542008-0 (Version None)
Quarter: 2012Q3

REPORT INFORMATION
  Report Type: 
  Country: None (occurrence: None)
  Receive Date: 20120726
  Receipt Date: 20111212
  Transmission Date: 20120928
  Serious: No
  Sender: FDA-Public Use
  Company Number: US-ASTRAZENECA-2011SE59036

PATIENT
  Age: 64 Year
  Sex: Female
  Weight: 62.6 kg

DRUGS (12)
  1. SEROQUEL [Suspect]
     Indication: BIPOLAR DISORDER
     Route: 048
     Dates: start: 20060101
  2. CENTRUM [Concomitant]
     Indication: MEDICAL DIET
  3. VITAMIN D [Concomitant]
     Indication: MEDICAL DIET
  4. LISINOPRIL [Concomitant]
     Indication: HYPERTENSION
  5. CRESTOR [Concomitant]
     Indication: BLOOD CHOLESTEROL INCREASED
  6. NORCO [Concomitant]
     Indication: PAIN
  7. METFORMIN HYDROCHLORIDE [Concomitant]
     Indication: DIABETES MELLITUS
  8. LOPRESSOR [Concomitant]
     Indication: HYPERTENSION
  9. KLONOPIN [Concomitant]
     Indication: ANXIETY
  10. CELEXA [Concomitant]
     Indication: ANTIDEPRESSANT THERAPY
  11. ASPIRIN [Concomitant]
     Indication: ANTICOAGULANT THERAPY
  12. MAGNESSIUM [Concomitant]
     Indication: MEDICAL DIET

REACTIONS (11)
  - MEMORY IMPAIRMENT [None]
  - SCREAMING [None]
  - BIPOLAR DISORDER [None]
  - IRRITABILITY [None]
  - ABNORMAL BEHAVIOUR [None]
  - DISTURBANCE IN ATTENTION [None]
  - CRYING [None]
  - ANGER [None]
  - DRUG DOSE OMISSION [None]
  - AGGRESSION [None]
  - ATTENTION DEFICIT/HYPERACTIVITY DISORDER [None]
